FAERS Safety Report 23528245 (Version 1)
Quarter: 2024Q1

REPORT INFORMATION
  Report Type: Spontaneous
  Country: US (occurrence: US)
  Receive Date: 20240215
  Receipt Date: 20240215
  Transmission Date: 20240410
  Serious: Yes (Other)
  Sender: FDA-Public Use
  Company Number: US-PFIZER INC-202400041750

PATIENT
  Age: 62 Year
  Sex: Male

DRUGS (1)
  1. INLYTA [Suspect]
     Active Substance: AXITINIB
     Dosage: 5 MG - 1 TABLET TWICE DAILY BY MOUTH
     Route: 048
     Dates: start: 20240104

REACTIONS (7)
  - Blood pressure increased [Unknown]
  - Nausea [Recovered/Resolved]
  - Constipation [Unknown]
  - Dysphonia [Unknown]
  - Dry mouth [Unknown]
  - Oropharyngeal pain [Unknown]
  - Appetite disorder [Unknown]
